FAERS Safety Report 6884032-X (Version None)
Quarter: 2010Q3

REPORT INFORMATION
  Report Type: 
  Country: None (occurrence: None)
  Receive Date: 20100729
  Receipt Date: 20100716
  Transmission Date: 20110219
  Serious: Yes (Other)
  Sender: FDA-Public Use
  Company Number: PHHY2010US47316

PATIENT
  Sex: Female

DRUGS (12)
  1. ZOMETA [Suspect]
     Indication: MULTIPLE MYELOMA
     Dosage: 4 MG, UNK
     Dates: start: 20081201, end: 20090701
  2. ZOMETA [Suspect]
     Dosage: 4 MG, UNK
     Dates: start: 20100301
  3. ZOMETA [Suspect]
     Dosage: 4 MG, UNK
     Dates: start: 20100401
  4. ACYCLOVIR [Concomitant]
     Dosage: 800 MG, BID
  5. DURAGESIC-100 [Concomitant]
     Dosage: 75 MCG ONCE EVERY 72 HOURS
  6. INTELENCE [Concomitant]
     Dosage: 100 MG, BID
  7. ISENTRESS [Concomitant]
     Dosage: 400 MG, TWO TABLETS TWICE A DAY
  8. NORVIR [Concomitant]
     Dosage: 100 MG, BID
  9. OXYCODONE HCL [Concomitant]
     Dosage: 10 MG , ONE TABLET EVERY SIX HOURS
  10. PREZISTA [Concomitant]
     Dosage: 600 MG, BID
  11. REVLIMID [Concomitant]
     Dosage: 10 MG, ONE CAPSULE EVERY 48 HOURS
  12. XANAX [Concomitant]
     Dosage: 1 MG, TID

REACTIONS (6)
  - BONE MARROW TRANSPLANT [None]
  - DENTAL CARIES [None]
  - SWELLING [None]
  - TOOTH ABSCESS [None]
  - TOOTH EXTRACTION [None]
  - TOOTH FRACTURE [None]
